FAERS Safety Report 7433921-6 (Version None)
Quarter: 2011Q2

REPORT INFORMATION
  Report Type: 
  Country: None (occurrence: None)
  Receive Date: 20110420
  Receipt Date: 20110420
  Transmission Date: 20111010
  Serious: Yes (Death)
  Sender: FDA-Public Use
  Company Number: None

PATIENT
  Age: 85 Year
  Sex: Male

DRUGS (9)
  1. OXYCODONE [Concomitant]
  2. DOCUSATE [Concomitant]
  3. PROCHLORPERAZINE TAB [Concomitant]
  4. LORAZEPAM [Concomitant]
  5. MORPHINE [Concomitant]
  6. SENNA [Concomitant]
  7. APAP TAB [Concomitant]
  8. REVLIMID [Suspect]
     Dosage: REVLIMID 5 MG DAILY ORALLY
     Route: 048
     Dates: start: 20100201, end: 20101001
  9. HYOSCYAMINE [Concomitant]

REACTIONS (3)
  - FATIGUE [None]
  - PERFORMANCE STATUS DECREASED [None]
  - PANCYTOPENIA [None]
